FAERS Safety Report 7011704-9 (Version None)
Quarter: 2010Q3

REPORT INFORMATION
  Report Type: 
  Country: None (occurrence: None)
  Receive Date: 20100923
  Receipt Date: 20090318
  Transmission Date: 20110219
  Serious: Yes (Other)
  Sender: FDA-Public Use
  Company Number: US-WYE-H08667209

PATIENT
  Sex: Female

DRUGS (5)
  1. PREMARIN [Suspect]
  2. PROVERA [Suspect]
  3. ESTRADERM [Suspect]
  4. MILPREM [Suspect]
  5. ESTINYL [Suspect]

REACTIONS (1)
  - ENDOMETRIAL CANCER [None]
